FAERS Safety Report 8590803-4 (Version None)
Quarter: 2012Q3

REPORT INFORMATION
  Report Type: 
  Country: None (occurrence: None)
  Receive Date: 20120813
  Receipt Date: 20120731
  Transmission Date: 20120928
  Serious: Yes (Hospitalization)
  Sender: FDA-Public Use
  Company Number: IT-FRI-1000024740

PATIENT
  Sex: Male

DRUGS (3)
  1. DEPAKENE [Suspect]
     Indication: MAJOR DEPRESSION
     Dosage: 900 MG
     Route: 048
     Dates: start: 20110601, end: 20111001
  2. ESCITALOPRAM OXALATE [Suspect]
     Indication: MAJOR DEPRESSION
     Dosage: 10 MG
     Route: 048
     Dates: start: 20110601, end: 20111001
  3. SEROQUEL [Suspect]
     Indication: MAJOR DEPRESSION
     Dosage: 600 MG
     Dates: start: 20110601, end: 20111001

REACTIONS (3)
  - PARAPLEGIA [None]
  - HYPERTHERMIA [None]
  - SUICIDE ATTEMPT [None]
